FAERS Safety Report 8606000-X (Version None)
Quarter: 2012Q3

REPORT INFORMATION
  Report Type: 
  Country: None (occurrence: None)
  Receive Date: 20120820
  Receipt Date: 20120806
  Transmission Date: 20120928
  Serious: Yes (Hospitalization)
  Sender: FDA-Public Use
  Company Number: US-MYLANLABS-2012S1016328

PATIENT
  Age: 65 Year
  Sex: Male

DRUGS (4)
  1. METRONIDAZOLE [Concomitant]
     Indication: EVIDENCE BASED TREATMENT
     Route: 065
  2. VANCOMYCIN [Suspect]
     Indication: EVIDENCE BASED TREATMENT
     Route: 065
  3. FLUCONAZOLE [Concomitant]
     Indication: EVIDENCE BASED TREATMENT
     Route: 065
  4. LEVOFLOXACIN [Suspect]
     Indication: EVIDENCE BASED TREATMENT
     Route: 065

REACTIONS (4)
  - DRUG RASH WITH EOSINOPHILIA AND SYSTEMIC SYMPTOMS [None]
  - OEDEMA MUCOSAL [None]
  - METABOLIC ACIDOSIS [None]
  - MENTAL STATUS CHANGES [None]
